FAERS Safety Report 4703519-9 (Version None)
Quarter: 2005Q2

REPORT INFORMATION
  Report Type: 
  Country: None (occurrence: None)
  Receive Date: 20050628
  Receipt Date: 20050615
  Transmission Date: 20051028
  Serious: Yes (Hospitalization, Other)
  Sender: FDA-Public Use
  Company Number: 2005088905

PATIENT
  Age: 39 Year
  Sex: Female
  Weight: 72.5755 kg

DRUGS (4)
  1. CELEBREX [Suspect]
     Indication: OSTEOARTHRITIS
     Dates: start: 19940101, end: 20041201
  2. BEXTRA [Suspect]
     Indication: OSTEOARTHRITIS
     Dates: start: 20041201, end: 20050123
  3. EFFEXOR [Concomitant]
  4. HYDROCODONE (HYDROCODONE) [Concomitant]

REACTIONS (5)
  - COLITIS [None]
  - DEPRESSION [None]
  - INTERVERTEBRAL DISC INJURY [None]
  - ROAD TRAFFIC ACCIDENT [None]
  - VEIN DISORDER [None]
